FAERS Safety Report 5816182-0 (Version None)
Quarter: 2008Q3

REPORT INFORMATION
  Report Type: 
  Country: None (occurrence: None)
  Receive Date: 20080721
  Receipt Date: 20080716
  Transmission Date: 20090109
  Serious: Yes (Hospitalization)
  Sender: FDA-Public Use
  Company Number: A0737988A

PATIENT
  Sex: Female

DRUGS (4)
  1. ADVAIR DISKUS 100/50 [Suspect]
     Indication: ASTHMA
     Dosage: 1PUFF PER DAY
     Route: 055
  2. LANOXIN [Suspect]
     Indication: ATRIAL FIBRILLATION
  3. FOSAMAX [Concomitant]
  4. PREVACID [Concomitant]

REACTIONS (2)
  - HEART RATE INCREASED [None]
  - OSTEOPOROSIS [None]
